FAERS Safety Report 8303585-8 (Version None)
Quarter: 2012Q2

REPORT INFORMATION
  Report Type: 
  Country: None (occurrence: None)
  Receive Date: 20120423
  Receipt Date: 20120419
  Transmission Date: 20120825
  Serious: No
  Sender: FDA-Public Use
  Company Number: US-PFIZER INC-2012071596

PATIENT
  Sex: Male
  Weight: 113.4 kg

DRUGS (2)
  1. LYRICA [Suspect]
     Indication: NEUROPATHY PERIPHERAL
     Dosage: 150 MG, 3X/DAY
     Route: 048
     Dates: start: 20120301
  2. LYRICA [Suspect]
     Dosage: UNK

REACTIONS (6)
  - PARAESTHESIA [None]
  - ARTHRALGIA [None]
  - NEURALGIA [None]
  - DRUG EFFECT DECREASED [None]
  - PAIN [None]
  - WEIGHT INCREASED [None]
